FAERS Safety Report 4657147-4 (Version None)
Quarter: 2005Q2

REPORT INFORMATION
  Report Type: 
  Country: None (occurrence: None)
  Receive Date: 20050408
  Receipt Date: 20050227
  Transmission Date: 20051028
  Serious: No
  Sender: FDA-Public Use
  Company Number: 230722K05USA

PATIENT
  Age: 58 Year
  Sex: Female
  Weight: 66.6788 kg

DRUGS (17)
  1. REBIF [Suspect]
     Indication: MULTIPLE SCLEROSIS
     Dosage: 44 MCG, 3 IN 1 WEEKS, SUBCUTANEOUS
     Route: 058
     Dates: start: 20030401
  2. MAGOX (ALL OTHER THERAPEUTIC PRODUCTS) [Concomitant]
  3. PLAVIS (CLOPIDOGREL SULFATE) [Concomitant]
  4. FLORINIES (ALL OTHER THERAPEUTIC PRODUCTS) [Concomitant]
  5. LIPITOR [Concomitant]
  6. SYNTHROID [Concomitant]
  7. ISOSORBIDE (ISOSORBIDE) [Concomitant]
  8. TOPAMAX [Concomitant]
  9. METFORMIN HCL [Concomitant]
  10. LOPRESSOR [Concomitant]
  11. RANITIDINE [Concomitant]
  12. HYDROCODONE BITARTRATE [Concomitant]
  13. VITAMIN B12 [Concomitant]
  14. VITAMIN B12 [Concomitant]
  15. VITAMIN C (ASCORBIC ACID) [Concomitant]
  16. ALL OTHER THERAPEUTIC PRODUCTS [Concomitant]
  17. FISH OIL (FISH OIL) [Concomitant]

REACTIONS (9)
  - BLOOD GLUCOSE INCREASED [None]
  - CHILLS [None]
  - CONVULSION [None]
  - DECREASED APPETITE [None]
  - DYSPNOEA [None]
  - HEADACHE [None]
  - MUSCULOSKELETAL STIFFNESS [None]
  - PYREXIA [None]
  - TREMOR [None]
